FAERS Safety Report 7104141-X (Version None)
Quarter: 2010Q4

REPORT INFORMATION
  Report Type: 
  Country: None (occurrence: None)
  Receive Date: 20101115
  Receipt Date: 20101011
  Transmission Date: 20110411
  Serious: Yes (Other)
  Sender: FDA-Public Use
  Company Number: US-ALLERGAN-1007074US

PATIENT
  Age: 27 Year
  Sex: Female
  Weight: 56.689 kg

DRUGS (4)
  1. BOTOX COSMETIC [Suspect]
     Indication: SKIN WRINKLING
     Dosage: 48 UNITS, SINGLE
     Route: 030
     Dates: start: 20100525, end: 20100525
  2. BIRTH CONTROL PILL [Concomitant]
  3. MULITVITAMIN [Concomitant]
  4. IRON SUPPLEMENTS [Concomitant]

REACTIONS (21)
  - ABDOMINAL DISCOMFORT [None]
  - ANXIETY [None]
  - ASTHENIA [None]
  - DECREASED APPETITE [None]
  - DIARRHOEA [None]
  - DRY MOUTH [None]
  - DYSGEUSIA [None]
  - DYSPHAGIA [None]
  - FACIAL PARESIS [None]
  - FATIGUE [None]
  - HYPOAESTHESIA FACIAL [None]
  - INJECTION SITE ERYTHEMA [None]
  - INJECTION SITE PAIN [None]
  - INJECTION SITE SWELLING [None]
  - MUSCULAR WEAKNESS [None]
  - NASAL DISCOMFORT [None]
  - NAUSEA [None]
  - OROPHARYNGEAL PAIN [None]
  - PALPITATIONS [None]
  - PARAESTHESIA [None]
  - SENSATION OF FOREIGN BODY [None]
